FAERS Safety Report 24875777 (Version 1)
Quarter: 2025Q1

REPORT INFORMATION
  Report Type: Spontaneous
  Country: US (occurrence: US)
  Receive Date: 20250122
  Receipt Date: 20250122
  Transmission Date: 20250408
  Serious: Yes (Other)
  Sender: ABBVIE
  Company Number: US-ABBVIE-6088201

PATIENT

DRUGS (2)
  1. REFRESH OPTIVE MEGA-3 [Suspect]
     Active Substance: CARBOXYMETHYLCELLULOSE SODIUM\GLYCERIN\POLYSORBATE 80
     Indication: Dry eye
     Route: 047
  2. REFRESH TEARS [Suspect]
     Active Substance: CARBOXYMETHYLCELLULOSE SODIUM
     Indication: Product used for unknown indication
     Route: 047

REACTIONS (5)
  - Liquid product physical issue [Unknown]
  - Eye discharge [Unknown]
  - Vision blurred [Unknown]
  - Keratomileusis [Unknown]
  - Retinal tear [Unknown]

NARRATIVE: CASE EVENT DATE: 20000101
